FAERS Safety Report 9374091 (Version 2)
Quarter: 2013Q3

REPORT INFORMATION
  Report Type: Spontaneous
  Country: US (occurrence: US)
  Receive Date: 20130628
  Receipt Date: 20130819
  Transmission Date: 20140515
  Serious: Yes (Hospitalization)
  Sender: FDA-Public Use
  Company Number: US-BIOGENIDEC-2013BI056494

PATIENT
  Age: 53 Year
  Sex: Female

DRUGS (2)
  1. AVONEX [Suspect]
     Indication: MULTIPLE SCLEROSIS
     Route: 030
     Dates: start: 20101127
  2. AVONEX [Suspect]
     Indication: MULTIPLE SCLEROSIS
     Route: 030
     Dates: start: 20130523

REACTIONS (7)
  - Intestinal obstruction [Not Recovered/Not Resolved]
  - Oedema peripheral [Recovered/Resolved]
  - Ligament sprain [Recovered/Resolved]
  - Contusion [Recovered/Resolved]
  - Abscess intestinal [Recovered/Resolved]
  - Diverticulitis [Not Recovered/Not Resolved]
  - Abdominal pain [Recovered/Resolved]
